FAERS Safety Report 13735101 (Version 1)
Quarter: 2017Q3

REPORT INFORMATION
  Report Type: Spontaneous
  Country: DK (occurrence: DK)
  Receive Date: 20170710
  Receipt Date: 20170710
  Transmission Date: 20171127
  Serious: Yes (Other)
  Sender: FDA-Public Use
  Company Number: DK-ROCHE-1961107

PATIENT
  Sex: Female

DRUGS (2)
  1. XOLAIR [Suspect]
     Active Substance: OMALIZUMAB
     Indication: URTICARIA CHRONIC
     Dosage: 300 MG, (INTERVAL FROM 4 TO 8 WEEKS)
     Route: 065
     Dates: start: 201111, end: 201409
  2. XOLAIR [Suspect]
     Active Substance: OMALIZUMAB
     Dosage: 300 MG, (INTERVAL FROM 4 TO 8 WEEKS)
     Route: 065
     Dates: start: 201412, end: 201502

REACTIONS (2)
  - Thrombocytopenia [Not Recovered/Not Resolved]
  - Platelet aggregation increased [Unknown]
